FAERS Safety Report 23135250 (Version 3)
Quarter: 2023Q4

REPORT INFORMATION
  Report Type: Report from Study
  Country: EG (occurrence: EG)
  Receive Date: 20231101
  Receipt Date: 20231117
  Transmission Date: 20240110
  Serious: Yes (Other)
  Sender: FDA-Public Use
  Company Number: EG-002147023-NVSC2023EG234046

PATIENT
  Sex: Female

DRUGS (2)
  1. COSENTYX [Suspect]
     Active Substance: SECUKINUMAB
     Indication: Systemic lupus erythematosus
     Dosage: 150 MG, Q2W (LOADING DOSE)
     Route: 058
     Dates: start: 2021, end: 202302
  2. COSENTYX [Suspect]
     Active Substance: SECUKINUMAB
     Indication: Psoriasis
     Dosage: 150 MG, QMO (MAINTENANCE DOSE)
     Route: 065

REACTIONS (10)
  - Arthralgia [Recovered/Resolved]
  - Rheumatic disorder [Recovered/Resolved]
  - Musculoskeletal stiffness [Recovered/Resolved]
  - Bone pain [Recovered/Resolved]
  - Systemic lupus erythematosus [Recovering/Resolving]
  - Antinuclear antibody increased [Unknown]
  - DNA antibody positive [Unknown]
  - Blood creatinine increased [Unknown]
  - Off label use [Recovered/Resolved]
  - Product use in unapproved indication [Recovered/Resolved]

NARRATIVE: CASE EVENT DATE: 20210101
